FAERS Safety Report 25710463 (Version 2)
Quarter: 2025Q4

REPORT INFORMATION
  Report Type: Spontaneous
  Country: GB (occurrence: GB)
  Receive Date: 20250821
  Receipt Date: 20251016
  Transmission Date: 20260117
  Serious: Yes (Hospitalization, Other)
  Sender: MYLAN
  Company Number: GB-MYLANLABS-2025M1070332

PATIENT
  Age: 43 Year
  Sex: Male
  Weight: 119.6 kg

DRUGS (18)
  1. CLOZARIL [Suspect]
     Active Substance: CLOZAPINE
     Indication: Schizophrenia
     Dosage: UNK, BID (200MG MANE AND 300MG NOCTE)
     Dates: start: 20060522, end: 20250815
  2. CARIPRAZINE [Concomitant]
     Active Substance: CARIPRAZINE
     Indication: Schizophrenia
     Dosage: 1.5 MILLIGRAM, QD
     Dates: start: 20250303, end: 20250828
  3. BISOPROLOL FUMARATE [Concomitant]
     Active Substance: BISOPROLOL FUMARATE
     Indication: Tachycardia
     Dosage: 2.5 MILLIGRAM, QD
     Dates: start: 20250303
  4. COD LIVER OIL [Concomitant]
     Active Substance: COD LIVER OIL
     Indication: Excessive dietary supplement intake
     Dosage: 400 MILLIGRAM, QD
     Dates: start: 20250303
  5. LANSOPRAZOLE [Concomitant]
     Active Substance: LANSOPRAZOLE
     Indication: Gastrooesophageal reflux disease
     Dosage: 30 MILLIGRAM, QD
     Dates: start: 20250303
  6. METFORMIN [Concomitant]
     Active Substance: METFORMIN HYDROCHLORIDE
     Indication: Glucose tolerance impaired
     Dosage: 500 MILLIGRAM, QD
     Dates: start: 20250303
  7. VITAMINS [Concomitant]
     Active Substance: VITAMINS
     Indication: Excessive dietary supplement intake
     Dosage: 1 DOSAGE FORM, QD
     Dates: start: 20250303
  8. SENNA [Concomitant]
     Active Substance: SENNOSIDES
     Indication: Constipation
     Dosage: 15 MILLIGRAM, PM
     Dates: start: 20250303
  9. SOLIFENACIN [Concomitant]
     Active Substance: SOLIFENACIN
     Indication: Urinary incontinence
     Dosage: 10 MILLIGRAM, QD
     Dates: start: 20250303
  10. CHOLECALCIFEROL [Concomitant]
     Active Substance: CHOLECALCIFEROL
     Indication: Vitamin D decreased
     Dosage: 800 MILLIGRAM, QD
     Dates: start: 20250404
  11. LITHIUM [Concomitant]
     Active Substance: LITHIUM
     Indication: Affective disorder
     Dosage: 600 MILLIGRAM, QD
     Dates: start: 20250624
  12. DIVALPROEX SODIUM [Concomitant]
     Active Substance: DIVALPROEX SODIUM
     Indication: Affective disorder
     Dosage: 500 MILLIGRAM, BID
     Dates: start: 20250624
  13. DIVALPROEX SODIUM [Concomitant]
     Active Substance: DIVALPROEX SODIUM
     Indication: Seizure prophylaxis
  14. DULOXETINE [Concomitant]
     Active Substance: DULOXETINE
     Indication: Antidepressant therapy
     Dosage: 40 MILLIGRAM, BID
     Dates: start: 20250624
  15. PREGABALIN [Concomitant]
     Active Substance: PREGABALIN
     Indication: Back pain
     Dosage: 150 MILLIGRAM, BID
     Dates: start: 20250722
  16. SCOPOLAMINE HYDROBROMIDE [Concomitant]
     Active Substance: SCOPOLAMINE HYDROBROMIDE
     Indication: Salivary hypersecretion
     Dosage: 300 MICROGRAM, TID
     Dates: start: 20250624, end: 20250815
  17. PIRENZEPINE [Concomitant]
     Active Substance: PIRENZEPINE
     Indication: Salivary hypersecretion
     Dosage: 50 MILLIGRAM, TID
     Dates: start: 20250624, end: 20250815
  18. EZETIMIBE [Concomitant]
     Active Substance: EZETIMIBE
     Indication: Blood cholesterol increased
     Dosage: 10 MILLIGRAM, QD
     Dates: start: 20250303, end: 20250824

REACTIONS (10)
  - Urinary tract infection [Recovered/Resolved]
  - Lower respiratory tract infection [Unknown]
  - Vomiting [Unknown]
  - Respiratory failure [Recovered/Resolved]
  - Constipation [Recovered/Resolved]
  - Ileus paralytic [Recovered/Resolved]
  - Acute kidney injury [Recovered/Resolved]
  - Escherichia bacteraemia [Unknown]
  - Pyelonephritis [Unknown]
  - Body mass index increased [Unknown]

NARRATIVE: CASE EVENT DATE: 20250808
